FAERS Safety Report 11626682 (Version 3)
Quarter: 2015Q4

REPORT INFORMATION
  Report Type: Report from Study
  Country: GR (occurrence: GR)
  Receive Date: 20151013
  Receipt Date: 20151211
  Transmission Date: 20160304
  Serious: Yes (Death, Hospitalization, Other)
  Sender: FDA-Public Use
  Company Number: PHHY2015GR124166

PATIENT
  Age: 79 Year
  Sex: Male

DRUGS (1)
  1. SANDOSTATIN LAR DEPOT [Suspect]
     Active Substance: OCTREOTIDE ACETATE
     Indication: ENDOCRINE NEOPLASM
     Dosage: UNK
     Route: 065
     Dates: start: 20150914

REACTIONS (3)
  - Death [Fatal]
  - Pulmonary embolism [Unknown]
  - Ileus [Unknown]
